FAERS Safety Report 4318505-0 (Version None)
Quarter: 2004Q1

REPORT INFORMATION
  Report Type: 
  Country: None (occurrence: None)
  Receive Date: 20040318
  Receipt Date: 20030225
  Transmission Date: 20041129
  Serious: Yes (Hospitalization)
  Sender: FDA-Public Use
  Company Number: US-BRISTOL-MYERS SQUIBB COMPANY-12194676

PATIENT
  Age: 67 Year
  Sex: Male
  Weight: 118 kg

DRUGS (9)
  1. GLUCOVANCE [Suspect]
     Indication: DIABETES MELLITUS
     Route: 048
     Dates: start: 20030123, end: 20030326
  2. CELEBREX [Concomitant]
  3. LIPITOR [Concomitant]
  4. ISORBIDE [Concomitant]
  5. WARFARIN SODIUM [Concomitant]
  6. GEODON [Concomitant]
  7. LEXAPRO [Concomitant]
  8. TOPROL-XL [Concomitant]
  9. ULTRACET [Concomitant]

REACTIONS (3)
  - BLOOD GLUCOSE DECREASED [None]
  - MEDICATION ERROR [None]
  - NIGHT SWEATS [None]
